FAERS Safety Report 12297311 (Version 2)
Quarter: 2018Q3

REPORT INFORMATION
  Report Type: Spontaneous
  Country: BR (occurrence: BR)
  Receive Date: 20160422
  Receipt Date: 20180716
  Transmission Date: 20181010
  Serious: Yes (Death, Hospitalization)
  Sender: FDA-Public Use
  Company Number: BR-BIOMARINAP-BR-2016-109545

PATIENT
  Sex: Male

DRUGS (1)
  1. ALDURAZYME [Suspect]
     Active Substance: LARONIDASE
     Indication: MUCOPOLYSACCHARIDOSIS I
     Dosage: UNK
     Route: 041
     Dates: end: 20160214

REACTIONS (8)
  - Cardiac arrest [Fatal]
  - Mouth swelling [Fatal]
  - Cardiac disorder [Fatal]
  - Cardiac valve rupture [Unknown]
  - Malaise [Unknown]
  - Dyspnoea [Unknown]
  - Hypoaesthesia [Fatal]
  - Infarction [Fatal]
